FAERS Safety Report 6939045-6 (Version None)
Quarter: 2010Q3

REPORT INFORMATION
  Report Type: 
  Country: None (occurrence: None)
  Receive Date: 20100824
  Receipt Date: 20100810
  Transmission Date: 20110219
  Serious: Yes (Hospitalization, Disabling)
  Sender: FDA-Public Use
  Company Number: JP-MERCK-1007USA00622

PATIENT
  Age: 26 Year
  Sex: Male

DRUGS (11)
  1. ISENTRESS [Suspect]
     Indication: HIV INFECTION
     Route: 048
     Dates: start: 20100127
  2. STOCRIN [Suspect]
     Indication: HIV INFECTION
     Route: 048
     Dates: start: 20050921, end: 20051004
  3. STOCRIN [Suspect]
     Route: 048
     Dates: start: 20070207, end: 20070221
  4. RETROVIR [Suspect]
     Indication: HIV INFECTION
     Route: 048
     Dates: start: 19961227, end: 20050921
  5. EPIVIR [Suspect]
     Indication: HIV INFECTION
     Route: 048
     Dates: start: 19970228, end: 20050921
  6. LEXIVA [Suspect]
     Indication: HIV INFECTION
     Route: 048
     Dates: start: 20090128, end: 20090517
  7. EPZICOM [Suspect]
     Indication: HIV INFECTION
     Route: 048
     Dates: start: 20090617, end: 20100127
  8. TRUVADA [Suspect]
     Indication: HIV INFECTION
     Route: 048
     Dates: start: 20070207, end: 20090617
  9. TRUVADA [Suspect]
     Route: 048
     Dates: start: 20100127
  10. INTELENCE [Suspect]
     Indication: HIV INFECTION
     Route: 048
     Dates: start: 20090617, end: 20100127
  11. INVIRASE [Suspect]
     Indication: HIV INFECTION
     Route: 048
     Dates: start: 19971003, end: 20050921

REACTIONS (4)
  - SPASTIC PARAPLEGIA [None]
  - SPINAL CORD DISORDER [None]
  - SUBACUTE COMBINED CORD DEGENERATION [None]
  - VITAMIN B12 DEFICIENCY [None]
